FAERS Safety Report 5149615-6 (Version None)
Quarter: 2006Q4

REPORT INFORMATION
  Report Type: 
  Country: None (occurrence: None)
  Receive Date: 20061113
  Receipt Date: 20060614
  Transmission Date: 20070319
  Serious: No
  Sender: FDA-Public Use
  Company Number: US-GLAXOSMITHKLINE-A0608997A

PATIENT
  Age: 54 Year
  Sex: Female

DRUGS (21)
  1. COREG [Suspect]
     Dosage: 3.125MG PER DAY
     Route: 048
     Dates: start: 20060509
  2. MIRAPEX [Concomitant]
  3. ARAVA [Concomitant]
  4. QUININE SULFATE [Concomitant]
     Indication: IMMUNOSUPPRESSION
  5. PREDNISONE TAB [Concomitant]
  6. ADVAIR DISKUS 100/50 [Concomitant]
  7. ZYRTEC [Concomitant]
  8. POTASSIUM ACETATE [Concomitant]
  9. UNKNOWN MEDICATION [Concomitant]
  10. NASACORT [Concomitant]
  11. NEXIUM [Concomitant]
  12. CELEBREX [Concomitant]
  13. TRAMADOL HCL [Concomitant]
  14. CODEINE [Concomitant]
  15. CARBATROL [Concomitant]
  16. LORAZEPAM [Concomitant]
  17. ESTROGENIC SUBSTANCE [Concomitant]
  18. NITROGLYCERIN [Concomitant]
  19. PROVENTIL [Concomitant]
  20. LIPRAM [Concomitant]
  21. ASPIRIN [Concomitant]

REACTIONS (4)
  - ANGER [None]
  - DYSPNOEA [None]
  - IMPULSIVE BEHAVIOUR [None]
  - WEIGHT INCREASED [None]
